FAERS Safety Report 9066259 (Version 1)
Quarter: 2013Q1

REPORT INFORMATION
  Report Type: Report from Study
  Country: US (occurrence: US)
  Receive Date: 20130131
  Receipt Date: 20130131
  Transmission Date: 20140127
  Serious: No
  Sender: FDA-Public Use
  Company Number: US-ABBOTT-12P-163-1007625-00

PATIENT
  Age: 53 Year
  Sex: Female

DRUGS (13)
  1. HUMIRA [Suspect]
     Indication: RHEUMATOID ARTHRITIS
     Dates: start: 201204
  2. CYMBALTA [Concomitant]
     Indication: DEPRESSION
     Dosage: 60MG 1 IN AM,30 IN PM, 30MG AT HOUR OF SLEEP
  3. OMEPRAZOLE [Concomitant]
     Indication: GASTROOESOPHAGEAL REFLUX DISEASE
  4. IBUPROFEN [Concomitant]
     Indication: RHEUMATOID ARTHRITIS
  5. BUPROPION HCL [Concomitant]
     Indication: DEPRESSION
  6. TOPIRAMATE [Concomitant]
     Indication: MIGRAINE
     Dosage: 1 AT HOUR OF SLEEP
  7. ROPINIROLE HCL [Concomitant]
     Indication: RESTLESS LEGS SYNDROME
     Dosage: 1MG 1 IN PM AND 1 AT HOUR OF SLEEP
  8. ZAFIRLUKAST [Concomitant]
     Indication: ASTHMA
  9. PREDNISONE [Concomitant]
     Indication: RHEUMATOID ARTHRITIS
     Dosage: 5MG DAILY IN AM
  10. ARAVA [Concomitant]
     Indication: RHEUMATOID ARTHRITIS
     Dosage: EVERY AM
  11. CALCIUM CHEWS [Concomitant]
     Indication: PRODUCT USED FOR UNKNOWN INDICATION
  12. MAGNESIUM [Concomitant]
     Indication: PRODUCT USED FOR UNKNOWN INDICATION
  13. VITAMIN B SUPER COMPLEX WITH VITAMIN C [Concomitant]
     Indication: PRODUCT USED FOR UNKNOWN INDICATION

REACTIONS (1)
  - Diarrhoea [Not Recovered/Not Resolved]
